FAERS Safety Report 13103472 (Version 1)
Quarter: 2017Q1

REPORT INFORMATION
  Report Type: Report from Study
  Country: None (occurrence: US)
  Receive Date: 20170111
  Receipt Date: 20170111
  Transmission Date: 20170428
  Serious: Yes (Other)
  Sender: FDA-Public Use
  Company Number: US-ABBVIE-16K-163-1784037-00

PATIENT
  Age: 59 Year
  Sex: Male
  Weight: 99.7 kg

DRUGS (1)
  1. HUMIRA [Suspect]
     Active Substance: ADALIMUMAB
     Indication: ANKYLOSING SPONDYLITIS
     Route: 058
     Dates: start: 201511, end: 201612

REACTIONS (1)
  - Pancreatic mass [Not Recovered/Not Resolved]

NARRATIVE: CASE EVENT DATE: 201612
